FAERS Safety Report 8605525-0 (Version None)
Quarter: 2012Q3

REPORT INFORMATION
  Report Type: 
  Country: None (occurrence: None)
  Receive Date: 20120820
  Receipt Date: 20120813
  Transmission Date: 20120928
  Serious: Yes (Other)
  Sender: FDA-Public Use
  Company Number: JP-SANOFI-AVENTIS-2012SA050034

PATIENT
  Age: 70 Year
  Sex: Male

DRUGS (18)
  1. LOSARTAN POTASSIUM [Concomitant]
  2. FERROUS FUMARATE [Concomitant]
  3. AMLODIPINE BESYLATE [Concomitant]
     Route: 048
  4. CLOSTRIDIUM BUTYRICUM [Concomitant]
     Route: 048
  5. XELODA [Suspect]
     Indication: COLON CANCER
     Route: 048
  6. ALOXI [Concomitant]
  7. SITAGLIPTIN PHOSPHATE [Concomitant]
  8. METILDIGOXIN [Concomitant]
  9. TAMSULOSIN HYDROCHLORIDE [Concomitant]
     Route: 048
  10. WARFARIN POTASSIUM [Concomitant]
     Route: 048
  11. AZOSEMIDE [Concomitant]
  12. MEQUITAZINE [Concomitant]
     Route: 048
  13. MAGNESIUM OXIDE [Concomitant]
     Route: 048
  14. LOXOPROFEN SODIUM [Concomitant]
     Route: 048
  15. DEXAMETHASONE SODIUM PHOSPHATE [Concomitant]
  16. GLIMEPIRIDE [Concomitant]
  17. SENNOSIDE A [Concomitant]
     Route: 048
  18. OXALIPLATIN [Suspect]
     Indication: COLON CANCER
     Route: 041

REACTIONS (2)
  - INTERNATIONAL NORMALISED RATIO INCREASED [None]
  - INFECTIOUS PLEURAL EFFUSION [None]
